FAERS Safety Report 9298522 (Version 2)
Quarter: 2013Q2

REPORT INFORMATION
  Report Type: Spontaneous
  Country: US (occurrence: US)
  Receive Date: 20130520
  Receipt Date: 20130619
  Transmission Date: 20140414
  Serious: Yes (Other)
  Sender: FDA-Public Use
  Company Number: PHEH2013US010675

PATIENT
  Sex: Female

DRUGS (1)
  1. CLOZARIL [Suspect]
     Dosage: UNK UKN, UNK
     Dates: start: 1977

REACTIONS (4)
  - Condition aggravated [Unknown]
  - Feeling abnormal [Unknown]
  - Regressive behaviour [Unknown]
  - Drug ineffective [Unknown]
